FAERS Safety Report 4745457-1 (Version None)
Quarter: 2005Q3

REPORT INFORMATION
  Report Type: 
  Country: None (occurrence: None)
  Receive Date: 20050811
  Receipt Date: 20040915
  Transmission Date: 20060218
  Serious: Yes (Hospitalization, Other)
  Sender: FDA-Public Use
  Company Number: USA040875917

PATIENT
  Age: 46 Year
  Sex: Female
  Weight: 105 kg

DRUGS (5)
  1. HUMALOG [Suspect]
     Indication: DIABETES MELLITUS
     Dates: start: 19970101
  2. HUMULIN R [Suspect]
     Indication: DIABETES MELLITUS
     Dates: start: 19860101
  3. HUMULIN N [Suspect]
     Indication: DIABETES MELLITUS
     Dosage: 66 U/2 DAY
     Dates: start: 19850101
  4. ILETIN-BEEF/PORK SEMILENTE INSULIN (INSULIN, ANIMAL [Suspect]
     Indication: DIABETES MELLITUS
     Dates: start: 19650101, end: 19860101
  5. ULTRA-LENTE ILETIN INSULIN [Suspect]
     Indication: DIABETES MELLITUS
     Dates: start: 19650101, end: 19860101

REACTIONS (9)
  - ANKLE FRACTURE [None]
  - CATARACT [None]
  - IMPAIRED GASTRIC EMPTYING [None]
  - JOINT SWELLING [None]
  - LOCALISED INFECTION [None]
  - NASOPHARYNGITIS [None]
  - SCRATCH [None]
  - VOMITING IN PREGNANCY [None]
  - WEIGHT DECREASED [None]
